FAERS Safety Report 6594921-1 (Version None)
Quarter: 2010Q1

REPORT INFORMATION
  Report Type: 
  Country: None (occurrence: None)
  Receive Date: 20100222
  Receipt Date: 20100210
  Transmission Date: 20100710
  Serious: Yes (Death, Other)
  Sender: FDA-Public Use
  Company Number: IR-PFIZER INC-2010019084

PATIENT
  Age: 30 Year
  Sex: Female

DRUGS (1)
  1. TRANEXAMIC ACID [Suspect]
     Route: 037

REACTIONS (8)
  - BRAIN OEDEMA [None]
  - CONVULSION [None]
  - DRUG DISPENSING ERROR [None]
  - HYPOTENSION [None]
  - INCORRECT ROUTE OF DRUG ADMINISTRATION [None]
  - PRODUCT OUTER PACKAGING ISSUE [None]
  - TACHYCARDIA [None]
  - VENTRICULAR FIBRILLATION [None]
